FAERS Safety Report 24813565 (Version 1)
Quarter: 2025Q1

REPORT INFORMATION
  Report Type: Spontaneous
  Country: GB (occurrence: GB)
  Receive Date: 20250107
  Receipt Date: 20250107
  Transmission Date: 20250409
  Serious: Yes (Hospitalization)
  Sender: CELLTRION
  Company Number: GB-CELLTRION INC.-2024GB033606

PATIENT

DRUGS (1)
  1. YUFLYMA [Suspect]
     Active Substance: ADALIMUMAB-AATY
     Indication: Crohn^s disease
     Route: 058
     Dates: start: 202401

REACTIONS (4)
  - Constipation [Unknown]
  - Ovulation disorder [Unknown]
  - Product supply issue [Unknown]
  - Product prescribing issue [Unknown]
